FAERS Safety Report 20792612 (Version 2)
Quarter: 2022Q3

REPORT INFORMATION
  Report Type: Spontaneous
  Country: DE (occurrence: DE)
  Receive Date: 20220506
  Receipt Date: 20220701
  Transmission Date: 20221027
  Serious: Yes (Death, Life-Threatening, Hospitalization, Other)
  Sender: FDA-Public Use
  Company Number: DE-BRISTOL-MYERS SQUIBB COMPANY-2022-030581

PATIENT
  Age: 90 Year
  Sex: Female
  Weight: 41.6 kg

DRUGS (9)
  1. APIXABAN [Suspect]
     Active Substance: APIXABAN
     Indication: Product used for unknown indication
     Route: 065
     Dates: start: 20220113
  2. Novodigal mite [Concomitant]
     Indication: Atrial fibrillation
     Route: 065
  3. BISOPROLOL [Concomitant]
     Active Substance: BISOPROLOL
     Indication: Product used for unknown indication
     Route: 065
  4. ATORVASTATIN [Concomitant]
     Active Substance: ATORVASTATIN
     Indication: Product used for unknown indication
     Route: 065
  5. AMLODIPINE BESYLATE [Concomitant]
     Active Substance: AMLODIPINE BESYLATE
     Indication: Product used for unknown indication
     Route: 065
  6. TELMISARTAN [Concomitant]
     Active Substance: TELMISARTAN
     Indication: Product used for unknown indication
     Route: 065
  7. TORSEMIDE [Concomitant]
     Active Substance: TORSEMIDE
     Indication: Product used for unknown indication
     Dosage: DOSE = 10 MILLIGRAM (2-1-0).
     Route: 065
  8. CHOLECALCIFEROL [Concomitant]
     Active Substance: CHOLECALCIFEROL
     Indication: Product used for unknown indication
     Route: 065
  9. OXAZEPAM [Concomitant]
     Active Substance: OXAZEPAM
     Indication: Product used for unknown indication
     Dosage: DOSE - 10 MILLIGRAM [ILLEGIBLE].
     Route: 065

REACTIONS (8)
  - Cerebral haemorrhage [Fatal]
  - Cerebrovascular accident [Fatal]
  - Diverticulum intestinal haemorrhagic [Fatal]
  - Gastrointestinal haemorrhage [Fatal]
  - Craniocerebral injury [Fatal]
  - Cerebral infarction [Fatal]
  - Coma [Fatal]
  - Fall [Fatal]

NARRATIVE: CASE EVENT DATE: 20220306
